FAERS Safety Report 6998608-2 (Version None)
Quarter: 2010Q3

REPORT INFORMATION
  Report Type: 
  Country: None (occurrence: None)
  Receive Date: 20100920
  Receipt Date: 20080529
  Transmission Date: 20110219
  Serious: Yes (Other)
  Sender: FDA-Public Use
  Company Number: US-ASTRAZENECA-2008UW08442

PATIENT
  Age: 11387 Day
  Sex: Male
  Weight: 120.2 kg

DRUGS (19)
  1. SEROQUEL [Suspect]
     Indication: PSYCHOTIC DISORDER
     Dosage: VARIOUS (INCLUDING BUT NOT LIMITED TO 300 MG - 800 MG)
     Route: 048
     Dates: start: 19990101, end: 20030507
  2. SEROQUEL [Suspect]
     Indication: SCHIZOPHRENIA
     Dosage: VARIOUS (INCLUDING BUT NOT LIMITED TO 300 MG - 800 MG)
     Route: 048
     Dates: start: 19990101, end: 20030507
  3. SEROQUEL [Suspect]
     Indication: BIPOLAR DISORDER
     Dosage: VARIOUS (INCLUDING BUT NOT LIMITED TO 300 MG - 800 MG)
     Route: 048
     Dates: start: 19990101, end: 20030507
  4. SEROQUEL [Suspect]
     Dosage: 100 MG-800 MG
     Route: 048
     Dates: start: 20001129
  5. SEROQUEL [Suspect]
     Dosage: 100 MG-800 MG
     Route: 048
     Dates: start: 20001129
  6. SEROQUEL [Suspect]
     Dosage: 100 MG-800 MG
     Route: 048
     Dates: start: 20001129
  7. HALDOL [Concomitant]
     Dosage: 20-40 MG
     Dates: start: 19980817
  8. NAVANE [Concomitant]
     Dates: start: 20030404
  9. RISPERDAL [Concomitant]
     Dates: start: 20000101, end: 20010101
  10. STELAZINE [Concomitant]
     Dates: start: 19960101, end: 19970101
  11. THORAZINE [Concomitant]
     Dates: start: 20001028
  12. ZYPREXA [Concomitant]
     Dates: start: 20001013
  13. WELLBUTRINE [Concomitant]
     Dates: start: 20030404
  14. LASIX [Concomitant]
     Dosage: 40 MG ALTERNATIVE DAYS
     Dates: start: 20030404
  15. LIPITOR [Concomitant]
     Dates: start: 20030404
  16. AVAPRO [Concomitant]
     Dates: start: 20030404
  17. TOPROL-XL [Concomitant]
     Dates: start: 20030404
  18. ATENOLOL [Concomitant]
     Dates: start: 20031121
  19. HYDROCHLOROTHIAZIDE [Concomitant]
     Dates: start: 20030404

REACTIONS (8)
  - BLOOD CHOLESTEROL INCREASED [None]
  - CARDIAC DISORDER [None]
  - CONVULSION [None]
  - DIABETES MELLITUS [None]
  - EXTRAPYRAMIDAL DISORDER [None]
  - HYPERTENSION [None]
  - OBESITY [None]
  - TARDIVE DYSKINESIA [None]
